FAERS Safety Report 20092081 (Version 2)
Quarter: 2022Q4

REPORT INFORMATION
  Report Type: Spontaneous
  Country: US (occurrence: US)
  Receive Date: 20211119
  Receipt Date: 20221019
  Transmission Date: 20230113
  Serious: Yes (Death, Other)
  Sender: FDA-Public Use
  Company Number: US-MYLANLABS-2021M1084980

PATIENT
  Age: 59 Year
  Sex: Female

DRUGS (14)
  1. VALSARTAN [Suspect]
     Active Substance: VALSARTAN
     Indication: Product used for unknown indication
     Dosage: UNK
     Route: 065
  2. HYDROCHLOROTHIAZIDE\VALSARTAN [Suspect]
     Active Substance: HYDROCHLOROTHIAZIDE\VALSARTAN
     Indication: Hypertension
     Dosage: 320-12.5 MILLIGRAM
     Route: 065
     Dates: start: 20130417, end: 20161122
  3. HYDROCHLOROTHIAZIDE\VALSARTAN [Suspect]
     Active Substance: HYDROCHLOROTHIAZIDE\VALSARTAN
     Indication: Hypertension
     Dosage: 320-12.5 MILLIGRAM
     Route: 065
     Dates: start: 20160607, end: 20160724
  4. HYDROCHLOROTHIAZIDE\VALSARTAN [Suspect]
     Active Substance: HYDROCHLOROTHIAZIDE\VALSARTAN
     Indication: Hypertension
     Dosage: 320-12.5 MILLIGRAM
     Route: 065
     Dates: start: 20160802, end: 20161218
  5. VALSARTAN [Suspect]
     Active Substance: VALSARTAN
     Indication: Hypertension
     Dosage: 320 MILLIGRAM
     Route: 065
     Dates: start: 20161219, end: 20180927
  6. LIPITOR [Concomitant]
     Active Substance: ATORVASTATIN CALCIUM
     Indication: Blood cholesterol abnormal
     Dosage: 40 MILLIGRAM, QD (40 MG; ONE PER DAY)
     Route: 065
     Dates: start: 20160209, end: 20191020
  7. CHLORTHALIDONE [Concomitant]
     Active Substance: CHLORTHALIDONE
     Indication: Blood pressure abnormal
     Dosage: 25 MILLIGRAM, QD (25 MG; ONE PER DAY)
     Route: 065
     Dates: start: 20180928, end: 20191211
  8. LEVSIN [Concomitant]
     Active Substance: HYOSCYAMINE SULFATE
     Indication: Abdominal pain
     Dosage: 0.125 MILLIGRAM PRN EVERY 6 HOURS AS NEEDED
     Route: 065
     Dates: start: 20180928, end: 20191211
  9. FLONASE [Concomitant]
     Active Substance: FLUTICASONE PROPIONATE
     Indication: Hypersensitivity
     Dosage: 50 MICROGRAM, QD (ACT SUSPENSION; TWO SPRAYS PER NOSTRIL, ONCE DAILY)
     Route: 065
     Dates: start: 20040820, end: 20190110
  10. XYZAL [Concomitant]
     Active Substance: LEVOCETIRIZINE DIHYDROCHLORIDE
     Indication: Hypersensitivity
     Dosage: 5 MILLIGRAM, QD (5 MG ONE PER DAY)
     Route: 065
     Dates: start: 20100604, end: 20190110
  11. SINGULAIR [Concomitant]
     Active Substance: MONTELUKAST SODIUM
     Indication: Hypersensitivity
     Dosage: 10 MILLIGRAM, QD (10 MG; ONE PER DAY)
     Route: 065
     Dates: start: 20080531, end: 20190917
  12. VESICARE [Concomitant]
     Active Substance: SOLIFENACIN SUCCINATE
     Indication: Hypertonic bladder
     Dosage: 5 MILLIGRAM, QD (5 MG; ONE PER DAY)
     Route: 065
     Dates: start: 20130102, end: 20150506
  13. REMERON [Concomitant]
     Active Substance: MIRTAZAPINE
     Indication: Depression
     Dosage: UNK
     Route: 065
     Dates: end: 20181207
  14. REMERON [Concomitant]
     Active Substance: MIRTAZAPINE
     Indication: Anxiety

REACTIONS (3)
  - Colorectal cancer metastatic [Fatal]
  - Colon cancer stage IV [Unknown]
  - Gastric cancer stage IV [Unknown]

NARRATIVE: CASE EVENT DATE: 20181213
